FAERS Safety Report 21556802 (Version 2)
Quarter: 2023Q2

REPORT INFORMATION
  Report Type: Report from Study
  Country: US (occurrence: US)
  Receive Date: 20221104
  Receipt Date: 20230410
  Transmission Date: 20230721
  Serious: No
  Sender: FDA-Public Use
  Company Number: US-002147023-NVSC2022US249228

PATIENT
  Sex: Female

DRUGS (2)
  1. KISQALI [Suspect]
     Active Substance: RIBOCICLIB
     Indication: Product used for unknown indication
     Dosage: UNK
     Route: 065
  2. KISQALI [Suspect]
     Active Substance: RIBOCICLIB
     Dosage: 200 MG
     Route: 048

REACTIONS (8)
  - Malaise [Unknown]
  - Influenza like illness [Unknown]
  - Limb discomfort [Unknown]
  - Chest discomfort [Unknown]
  - Brain fog [Unknown]
  - Toothache [Unknown]
  - Pruritus [Unknown]
  - Fatigue [Unknown]
